FAERS Safety Report 8200634-2 (Version None)
Quarter: 2012Q1

REPORT INFORMATION
  Report Type: 
  Country: None (occurrence: None)
  Receive Date: 20120312
  Receipt Date: 20120305
  Transmission Date: 20120608
  Serious: Yes (Hospitalization, Other)
  Sender: FDA-Public Use
  Company Number: NZ-B.I. PHARMACEUTICALS,INC./RIDGEFIELD-2011-AU-01242AU

PATIENT
  Age: 84 Year
  Sex: Male

DRUGS (1)
  1. PRADAXA [Suspect]
     Dosage: 300 MG

REACTIONS (5)
  - STRESS ULCER [None]
  - FEMORAL NECK FRACTURE [None]
  - HAEMORRHAGE [None]
  - COAGULATION TEST ABNORMAL [None]
  - HAEMOGLOBIN DECREASED [None]
